FAERS Safety Report 15511365 (Version 1)
Quarter: 2018Q4

REPORT INFORMATION
  Report Type: Spontaneous
  Country: US (occurrence: US)
  Receive Date: 20181017
  Receipt Date: 20181017
  Transmission Date: 20190205
  Serious: No
  Sender: FDA-Public Use
  Company Number: None

PATIENT
  Age: 11 Month
  Sex: Female
  Weight: 47.25 kg

DRUGS (1)
  1. CLINDAMYCIN CAPSULES (FRONT C/40) [Suspect]
     Active Substance: CLINDAMYCIN HYDROCHLORIDE
     Indication: SKIN INFECTION
     Dosage: ?          QUANTITY:30 CAPSULE(S);?
     Route: 048
     Dates: start: 20181011, end: 20181016

REACTIONS (4)
  - Rash [None]
  - Urticaria [None]
  - Chromaturia [None]
  - Diarrhoea [None]

NARRATIVE: CASE EVENT DATE: 20181016
